FAERS Safety Report 4730472-4 (Version None)
Quarter: 2005Q3

REPORT INFORMATION
  Report Type: 
  Country: None (occurrence: None)
  Receive Date: 20050801
  Receipt Date: 20050720
  Transmission Date: 20060218
  Serious: Yes (Life-Threatening)
  Sender: FDA-Public Use
  Company Number: ES-BRISTOL-MYERS SQUIBB COMPANY-13056015

PATIENT
  Age: 66 Year
  Sex: Male

DRUGS (1)
  1. ERBITUX [Suspect]
     Indication: RECTOSIGMOID CANCER
     Dosage: 2 MG/ML 1 VIAL 50 ML
     Route: 042
     Dates: start: 20050615

REACTIONS (2)
  - ANAPHYLACTOID REACTION [None]
  - CARDIAC ARREST [None]
